FAERS Safety Report 8591886-8 (Version None)
Quarter: 2012Q3

REPORT INFORMATION
  Report Type: 
  Country: None (occurrence: None)
  Receive Date: 20120814
  Receipt Date: 20120813
  Transmission Date: 20120928
  Serious: Yes (Hospitalization)
  Sender: FDA-Public Use
  Company Number: PHHY2012AU050364

PATIENT
  Sex: Female

DRUGS (3)
  1. CLOZARIL [Suspect]
     Indication: PSYCHOTIC DISORDER
     Dosage: 200 MG, UNK
     Route: 048
     Dates: start: 20040302
  2. LITHIUM CARBONATE [Concomitant]
     Indication: PSYCHOTIC DISORDER
     Dosage: 450 MG, BID
  3. LITHIUM CARBONATE [Concomitant]
     Route: 048

REACTIONS (2)
  - MENTAL IMPAIRMENT [None]
  - PSYCHOTIC DISORDER [None]
